FAERS Safety Report 8485448-0 (Version None)
Quarter: 2012Q3

REPORT INFORMATION
  Report Type: 
  Country: None (occurrence: None)
  Receive Date: 20120703
  Receipt Date: 20120627
  Transmission Date: 20120928
  Serious: Yes (Other)
  Sender: FDA-Public Use
  Company Number: US-PFIZER INC-2012155136

PATIENT
  Sex: Male
  Weight: 59.41 kg

DRUGS (1)
  1. PROTONIX [Suspect]
     Indication: SURGERY
     Dosage: 40 MG, DAILY
     Route: 048
     Dates: start: 20070201

REACTIONS (3)
  - SMALL INTESTINAL HAEMORRHAGE [None]
  - HEPATIC FUNCTION ABNORMAL [None]
  - STRESS [None]
